FAERS Safety Report 4310210-X (Version None)
Quarter: 2004Q1

REPORT INFORMATION
  Report Type: 
  Country: None (occurrence: None)
  Receive Date: 20040302
  Receipt Date: 20040302
  Transmission Date: 20041129
  Serious: No
  Sender: FDA-Public Use
  Company Number: None

PATIENT
  Sex: Female
  Weight: 72 kg

DRUGS (1)
  1. GEMCITABINE 1500 MG/M2 IV OVER 1500 MIN. Q WK. X 3 EVERY 4 WEEKS [Suspect]
     Indication: PANCREATIC CARCINOMA
     Dosage: 1500 MG/M2 IV OVER 150 MIN. Q WK. X 3 EVERY 4 WEEKS
     Route: 042
     Dates: start: 20031203

REACTIONS (1)
  - TRANSIENT ISCHAEMIC ATTACK [None]
